FAERS Safety Report 5082807-3 (Version None)
Quarter: 2006Q3

REPORT INFORMATION
  Report Type: 
  Country: None (occurrence: None)
  Receive Date: 20060816
  Receipt Date: 20060816
  Transmission Date: 20061208
  Serious: Yes (Other)
  Sender: FDA-Public Use
  Company Number: None

PATIENT
  Age: 50 Year
  Sex: Male
  Weight: 90.7194 kg

DRUGS (5)
  1. XOLAIR [Suspect]
     Indication: ASTHMA
     Dosage: 300MG INJECTION -DIVIDED IN 2-   ONE PER MONTH   CUTANEOUS
     Route: 003
     Dates: start: 20060803, end: 20060803
  2. AVODART [Concomitant]
  3. FLOMAX [Concomitant]
  4. ALLEGRA-D 12 HOUR [Concomitant]
  5. SINGULAIR [Concomitant]

REACTIONS (7)
  - COGNITIVE DISORDER [None]
  - DIZZINESS [None]
  - FATIGUE [None]
  - HEADACHE [None]
  - HYPERHIDROSIS [None]
  - IMPAIRED DRIVING ABILITY [None]
  - SPEECH DISORDER [None]
